FAERS Safety Report 6320493-2 (Version None)
Quarter: 2009Q3

REPORT INFORMATION
  Report Type: 
  Country: None (occurrence: None)
  Receive Date: 20090822
  Receipt Date: 20081112
  Transmission Date: 20100115
  Serious: No
  Sender: FDA-Public Use
  Company Number: US-ABBOTT-08P-163-0487274-00

PATIENT
  Sex: Male

DRUGS (6)
  1. NIASPAN [Suspect]
     Indication: LOW DENSITY LIPOPROTEIN INCREASED
     Dates: start: 20060101, end: 20081110
  2. SIMCOR [Suspect]
     Indication: LOW DENSITY LIPOPROTEIN INCREASED
     Dosage: 500/20 MG
     Dates: start: 20081110
  3. PARACETAMOL [Concomitant]
     Indication: FLUSHING
  4. ASPIRIN [Concomitant]
     Indication: FLUSHING
  5. BYSOFAL [Concomitant]
     Indication: DRUG USE FOR UNKNOWN INDICATION
  6. OMEPRAZOLE [Concomitant]
     Indication: DRUG USE FOR UNKNOWN INDICATION

REACTIONS (5)
  - ABNORMAL FAECES [None]
  - BURNING SENSATION [None]
  - DISTURBANCE IN ATTENTION [None]
  - FLUSHING [None]
  - HEADACHE [None]
